FAERS Safety Report 6430994-4 (Version None)
Quarter: 2009Q4

REPORT INFORMATION
  Report Type: 
  Country: None (occurrence: None)
  Receive Date: 20091106
  Receipt Date: 20091026
  Transmission Date: 20100525
  Serious: Yes (Other)
  Sender: FDA-Public Use
  Company Number: CA-JNJFOC-20091008111

PATIENT
  Sex: Male
  Weight: 40 kg

DRUGS (5)
  1. REMICADE [Suspect]
     Indication: CROHN'S DISEASE
     Route: 042
  2. BENADRYL [Concomitant]
     Indication: PREMEDICATION
     Route: 048
  3. HYDROCORTISONE [Concomitant]
     Indication: PREMEDICATION
     Route: 042
  4. FLAGYL [Concomitant]
  5. BIO-KALKKI [Concomitant]

REACTIONS (12)
  - COLD SWEAT [None]
  - DYSPNOEA [None]
  - ERYTHEMA [None]
  - EXPRESSIVE LANGUAGE DISORDER [None]
  - HEART RATE INCREASED [None]
  - INFUSION RELATED REACTION [None]
  - IRRITABILITY [None]
  - LACRIMATION INCREASED [None]
  - OXYGEN SATURATION DECREASED [None]
  - THROAT IRRITATION [None]
  - THROAT TIGHTNESS [None]
  - VOMITING [None]
